FAERS Safety Report 23395180 (Version 2)
Quarter: 2024Q1

REPORT INFORMATION
  Report Type: Report from Study
  Country: US (occurrence: US)
  Receive Date: 20240112
  Receipt Date: 20240117
  Transmission Date: 20240410
  Serious: No
  Sender: FDA-Public Use
  Company Number: US-AMGEN-USASP2024006182

PATIENT
  Sex: Female

DRUGS (1)
  1. OTEZLA [Suspect]
     Active Substance: APREMILAST
     Indication: Psoriasis
     Dosage: 30 MILLIGRAM, BID
     Route: 048

REACTIONS (6)
  - Memory impairment [Unknown]
  - Illness [Unknown]
  - Arthropathy [Unknown]
  - Abscess [Unknown]
  - Therapy interrupted [Unknown]
  - Bone disorder [Unknown]
